FAERS Safety Report 7945534 (Version 4)
Quarter: 2013Q1

REPORT INFORMATION
  Report Type: Report from Study
  Country: US (occurrence: US)
  Receive Date: 20110516
  Receipt Date: 20130107
  Transmission Date: 20140127
  Serious: Yes (Hospitalization)
  Sender: FDA-Public Use
  Company Number: US-BRISTOL-MYERS SQUIBB COMPANY-15731243

PATIENT
  Age: 44 Year
  Sex: Female
  Weight: 89.4 kg

DRUGS (6)
  1. IPILIMUMAB [Suspect]
     Indication: MALIGNANT MELANOMA
     Dosage: LAST DOSE:14APR2011, 14JUL2011?10MG/KG IV OVER 90MIN
     Route: 042
     Dates: start: 20110414
  2. AMITRIPTYLINE [Concomitant]
  3. FLEXERIL [Concomitant]
  4. FLUOXETINE [Concomitant]
  5. GABAPENTIN [Concomitant]
  6. TYLENOL #3 [Concomitant]

REACTIONS (2)
  - Tumour pain [Recovered/Resolved]
  - Non-cardiac chest pain [Recovered/Resolved]
